FAERS Safety Report 10157172 (Version 2)
Quarter: 2014Q2

REPORT INFORMATION
  Report Type: Spontaneous
  Country: US (occurrence: US)
  Receive Date: 20140507
  Receipt Date: 20140530
  Transmission Date: 20141212
  Serious: Yes (Other)
  Sender: FDA-Public Use
  Company Number: US-SA-2014SA058797

PATIENT
  Age: 74 Year
  Sex: Male
  Weight: 90 kg

DRUGS (5)
  1. NASACORT ALLERGY [Suspect]
     Indication: PRODUCT USED FOR UNKNOWN INDICATION
     Dosage: 2 SPARAYS DAILY
     Route: 065
     Dates: start: 20140410, end: 20140412
  2. ACETYLSALICYLIC ACID [Concomitant]
  3. VITAMIN B12 [Concomitant]
  4. CALCIUM [Concomitant]
  5. SIMVASTATIN [Concomitant]
     Indication: BLOOD CHOLESTEROL
     Route: 065

REACTIONS (1)
  - Atrial fibrillation [Recovered/Resolved]
